FAERS Safety Report 4958691-2 (Version None)
Quarter: 2006Q1

REPORT INFORMATION
  Report Type: 
  Country: None (occurrence: None)
  Receive Date: 20060330
  Receipt Date: 20050923
  Transmission Date: 20060701
  Serious: Yes (Death)
  Sender: FDA-Public Use
  Company Number: ES-MERCK-0603USA04561

PATIENT
  Age: 94 Year
  Sex: Female

DRUGS (5)
  1. MODURETIC 5-50 [Suspect]
     Route: 048
     Dates: end: 20050806
  2. AMIODARONE HYDROCHLORIDE [Concomitant]
     Indication: ARRHYTHMIA
     Route: 048
     Dates: end: 20050806
  3. ASPIRIN [Concomitant]
     Route: 048
     Dates: end: 20050806
  4. GLYBURIDE [Concomitant]
     Route: 048
     Dates: end: 20050806
  5. GLUCOBAY [Concomitant]
     Route: 048
     Dates: end: 20050806

REACTIONS (2)
  - DEATH [None]
  - INAPPROPRIATE ANTIDIURETIC HORMONE SECRETION [None]
